FAERS Safety Report 16742194 (Version 1)
Quarter: 2019Q3

REPORT INFORMATION
  Report Type: Spontaneous
  Country: FR (occurrence: FR)
  Receive Date: 20190826
  Receipt Date: 20190826
  Transmission Date: 20191005
  Serious: Yes (Other)
  Sender: FDA-Public Use
  Company Number: FR-MYLANLABS-2019M1078779

PATIENT
  Age: 9 Year
  Sex: Male

DRUGS (1)
  1. VENTILASTIN NOVOLIZER [Suspect]
     Active Substance: ALBUTEROL SULFATE
     Indication: ASTHMATIC CRISIS
     Dosage: UNK
     Route: 055

REACTIONS (3)
  - Product dose omission [Recovered/Resolved]
  - Device issue [Unknown]
  - Product quality issue [Unknown]
